FAERS Safety Report 21013572 (Version 1)
Quarter: 2022Q2

REPORT INFORMATION
  Report Type: Spontaneous
  Country: US (occurrence: US)
  Receive Date: 20220627
  Receipt Date: 20220627
  Transmission Date: 20220720
  Serious: No
  Sender: FDA-Public Use
  Company Number: US-SA-SAC20220621000449

PATIENT
  Sex: Male

DRUGS (1)
  1. CERDELGA [Suspect]
     Active Substance: ELIGLUSTAT
     Indication: Gaucher^s disease type I
     Dosage: UNK

REACTIONS (3)
  - Chitotriosidase increased [Unknown]
  - Bone pain [Unknown]
  - Drug ineffective [Unknown]
